FAERS Safety Report 4512823-9 (Version None)
Quarter: 2004Q4

REPORT INFORMATION
  Report Type: 
  Country: None (occurrence: None)
  Receive Date: 20041130
  Receipt Date: 20041118
  Transmission Date: 20050328
  Serious: Yes (Death, Life-Threatening, Disabling)
  Sender: FDA-Public Use
  Company Number: VE-JNJFOC-20041105650

PATIENT
  Sex: Female
  Weight: 39.8 kg

DRUGS (5)
  1. INFLIXIMAB [Suspect]
     Dosage: PATIENT RECEIVED 12 DOSES IN TOTAL.
     Route: 042
  2. INFLIXIMAB [Suspect]
     Indication: RHEUMATOID ARTHRITIS
     Route: 042
  3. PREDNISONE [Concomitant]
     Indication: RHEUMATOID ARTHRITIS
     Route: 049
  4. METHOTREXATE [Concomitant]
     Indication: RHEUMATOID ARTHRITIS
     Route: 030
  5. FOLIC ACID [Concomitant]
     Route: 049

REACTIONS (5)
  - AMOEBIASIS [None]
  - ANOREXIA [None]
  - HAEMATOCRIT DECREASED [None]
  - HAEMOGLOBIN DECREASED [None]
  - LOSS OF CONSCIOUSNESS [None]
